FAERS Safety Report 8615778-0 (Version None)
Quarter: 2012Q3

REPORT INFORMATION
  Report Type: 
  Country: None (occurrence: None)
  Receive Date: 20120823
  Receipt Date: 20120815
  Transmission Date: 20120928
  Serious: Yes (Hospitalization, Other)
  Sender: FDA-Public Use
  Company Number: US-ROCHE-714509

PATIENT
  Sex: Female
  Weight: 44.5 kg

DRUGS (5)
  1. KENALOG [Concomitant]
     Indication: ACNE CYSTIC
     Dosage: STRENGTH 2.5 MG/CC.
     Route: 026
  2. ACCUTANE [Suspect]
     Indication: ACNE
     Route: 065
     Dates: start: 19950517, end: 19950901
  3. ACCUTANE [Suspect]
     Route: 065
     Dates: start: 19990308, end: 19990324
  4. ACCUTANE [Suspect]
     Route: 065
     Dates: start: 19990324, end: 19990901
  5. BIRTH CONTROL PILLS NOS [Concomitant]

REACTIONS (9)
  - COLITIS ULCERATIVE [None]
  - ANAEMIA [None]
  - CHAPPED LIPS [None]
  - INFLAMMATORY BOWEL DISEASE [None]
  - GASTRITIS VIRAL [None]
  - LIP DRY [None]
  - DEPRESSION [None]
  - DERMATITIS [None]
  - MUSCULOSKELETAL DISCOMFORT [None]
